FAERS Safety Report 5412448-7 (Version None)
Quarter: 2007Q3

REPORT INFORMATION
  Report Type: 
  Country: None (occurrence: None)
  Receive Date: 20070813
  Receipt Date: 20070806
  Transmission Date: 20080115
  Serious: Yes (Other)
  Sender: FDA-Public Use
  Company Number: AU-GENENTECH-245740

PATIENT

DRUGS (1)
  1. RITUXAN [Suspect]
     Indication: GRAFT VERSUS HOST DISEASE

REACTIONS (2)
  - BLINDNESS [None]
  - DEAFNESS [None]
